FAERS Safety Report 6430714-3 (Version None)
Quarter: 2009Q4

REPORT INFORMATION
  Report Type: 
  Country: None (occurrence: None)
  Receive Date: 20091105
  Receipt Date: 20091105
  Transmission Date: 20100525
  Serious: Yes (Life-Threatening, Hospitalization)
  Sender: FDA-Public Use
  Company Number: None

PATIENT
  Age: 28 Year

DRUGS (2)
  1. DIGOXIN [Suspect]
     Indication: ATRIAL FIBRILLATION
     Dosage: UNKNOWN MG UNKNOWN PO
     Route: 048
     Dates: start: 20060806, end: 20090806
  2. ACETAMINOPHEN AND HYDROCODONE BITARTRATE [Suspect]
     Indication: PAIN
     Dosage: UNKNOWN MG UNKNOWN PO
     Route: 048
     Dates: start: 20090806, end: 20090806

REACTIONS (3)
  - MULTIPLE DRUG OVERDOSE [None]
  - NAUSEA [None]
  - VOMITING [None]
